FAERS Safety Report 8956327 (Version 2)
Quarter: 2012Q4

REPORT INFORMATION
  Report Type: 
  Country: GB (occurrence: GB)
  Receive Date: 20121210
  Receipt Date: 20121220
  Transmission Date: 20130627
  Serious: Yes (Hospitalization)
  Sender: FDA-Public Use
  Company Number: GB-JNJFOC-2003156890GB

PATIENT
  Age: 46 Year
  Sex: Female
  Weight: 50.8 kg

DRUGS (6)
  1. MOTRIN [Suspect]
     Indication: ANALGESIC THERAPY
     Dosage: Frequency Text: tid Daily Dose Text: 400 Milligram, tid Daily Dose Qty: 1200 mg
     Route: 048
     Dates: start: 20030330, end: 20030403
  2. PARACETAMOL [Suspect]
     Indication: ANALGESIC THERAPY
     Dosage: Frequency Text: qid Daily Dose Text: 1 Gram, qid Daily Dose Qty: 4 g
     Route: 048
     Dates: start: 20030330, end: 20030403
  3. LOSEC [Concomitant]
     Indication: PRODUCT USED FOR UNKNOWN INDICATION
     Dosage: Daily Dose Text: 20 mg, UNK
     Route: 048
     Dates: end: 20030304
  4. CLEXANE [Concomitant]
     Indication: PRODUCT USED FOR UNKNOWN INDICATION
     Dosage: Daily Dose Text: 20 mg, UNK
     Route: 058
     Dates: start: 20030330, end: 20030403
  5. ORAMORPH [Concomitant]
     Indication: ANALGESIC THERAPY
     Dosage: Daily Dose Text: 5-10mg
     Route: 048
     Dates: start: 20030330, end: 20030403
  6. ZOPLICONE [Concomitant]
     Indication: SEDATION
     Route: 048

REACTIONS (2)
  - Liver function test abnormal [Recovering/Resolving]
  - Jaundice [Recovering/Resolving]
